FAERS Safety Report 8343259-0 (Version None)
Quarter: 2012Q2

REPORT INFORMATION
  Report Type: 
  Country: None (occurrence: None)
  Receive Date: 20120508
  Receipt Date: 20120430
  Transmission Date: 20120825
  Serious: Yes (Hospitalization)
  Sender: FDA-Public Use
  Company Number: US-BAYER-2011-099277

PATIENT
  Age: 33 Year
  Sex: Female
  Weight: 40 kg

DRUGS (7)
  1. ONE A DAY [Concomitant]
     Indication: VITAMIN SUPPLEMENTATION
     Dosage: 1 TAB DAILY
     Dates: start: 20080801, end: 20090901
  2. DROSPIRENONE AND ETHINYL ESTRADIOL [Suspect]
     Indication: CONTRACEPTION
     Dosage: UNK UNK, QD
     Route: 048
     Dates: start: 20090527, end: 20090916
  3. DILAUDID [Concomitant]
  4. ZOFRAN [Concomitant]
  5. YAZ [Suspect]
     Indication: CONTRACEPTION
     Dosage: UNK, QD
     Route: 048
     Dates: start: 20080814, end: 20090421
  6. YAZ [Suspect]
     Indication: ACNE
  7. DROSPIRENONE AND ETHINYL ESTRADIOL [Suspect]
     Indication: ACNE

REACTIONS (11)
  - ANXIETY [None]
  - CHOLELITHIASIS [None]
  - VOMITING [None]
  - INJURY [None]
  - GENERAL PHYSICAL HEALTH DETERIORATION [None]
  - NAUSEA [None]
  - BILIARY COLIC [None]
  - CHOLECYSTITIS [None]
  - ABDOMINAL PAIN UPPER [None]
  - PAIN [None]
  - EMOTIONAL DISTRESS [None]
